FAERS Safety Report 6383050-8 (Version None)
Quarter: 2009Q3

REPORT INFORMATION
  Report Type: 
  Country: None (occurrence: None)
  Receive Date: 20090930
  Receipt Date: 20090921
  Transmission Date: 20100115
  Serious: Yes (Other)
  Sender: FDA-Public Use
  Company Number: CA-AMGEN-KDL364643

PATIENT
  Sex: Female
  Weight: 71 kg

DRUGS (4)
  1. NEULASTA [Suspect]
     Indication: CHEMOTHERAPY
     Route: 058
     Dates: start: 20090911, end: 20090911
  2. FLUOROURACIL [Concomitant]
     Dates: start: 20090910, end: 20090910
  3. EPIRUBICIN [Concomitant]
     Dates: start: 20090910, end: 20090910
  4. CYCLOPHOSPHAMIDE [Concomitant]
     Dates: start: 20090910, end: 20090910

REACTIONS (4)
  - BONE PAIN [None]
  - CHEST DISCOMFORT [None]
  - DYSPNOEA [None]
  - NECK PAIN [None]
